FAERS Safety Report 16173156 (Version 2)
Quarter: 2019Q4

REPORT INFORMATION
  Report Type: Spontaneous
  Country: FI (occurrence: FI)
  Receive Date: 20190409
  Receipt Date: 20191001
  Transmission Date: 20200122
  Serious: Yes (Other)
  Sender: FDA-Public Use
  Company Number: FI-SUN PHARMACEUTICAL INDUSTRIES LTD-2019RR-204050

PATIENT
  Age: 70 Year
  Sex: Male

DRUGS (1)
  1. ESOMEPRAZOL ORION 20 MG ENTEROTABLETTI [Suspect]
     Active Substance: ESOMEPRAZOLE MAGNESIUM
     Indication: GASTRITIS
     Dosage: 2 DOSAGE FORM, 1 IN 1
     Route: 048
     Dates: start: 20190326, end: 20190326

REACTIONS (7)
  - Mouth swelling [Not Recovered/Not Resolved]
  - Paraesthesia oral [Not Recovered/Not Resolved]
  - Product quality issue [Unknown]
  - Respiratory tract oedema [Not Recovered/Not Resolved]
  - Paraesthesia mucosal [Not Recovered/Not Resolved]
  - Product complaint [Unknown]
  - Lip swelling [Not Recovered/Not Resolved]

NARRATIVE: CASE EVENT DATE: 20190326
